FAERS Safety Report 13395283 (Version 1)
Quarter: 2017Q2

REPORT INFORMATION
  Report Type: Spontaneous
  Country: US (occurrence: US)
  Receive Date: 20170403
  Receipt Date: 20170403
  Transmission Date: 20170830
  Serious: No
  Sender: FDA-Public Use
  Company Number: US-PFIZER INC-2017140117

PATIENT
  Sex: Female

DRUGS (1)
  1. XELJANZ [Suspect]
     Active Substance: TOFACITINIB CITRATE
     Indication: ARTHROPATHY
     Dosage: 5 MG, 2X/DAY

REACTIONS (14)
  - Temperature intolerance [Unknown]
  - Product use in unapproved indication [Unknown]
  - Peripheral swelling [Unknown]
  - Chest pain [Unknown]
  - Dry skin [Unknown]
  - Ocular hyperaemia [Unknown]
  - Finger deformity [Unknown]
  - Dyspepsia [Unknown]
  - Dry eye [Unknown]
  - Musculoskeletal pain [Unknown]
  - Paraesthesia [Unknown]
  - Back pain [Unknown]
  - Nocturia [Unknown]
  - Dry mouth [Unknown]
